FAERS Safety Report 5416403-2 (Version None)
Quarter: 2007Q3

REPORT INFORMATION
  Report Type: 
  Country: None (occurrence: None)
  Receive Date: 20070814
  Receipt Date: 20070806
  Transmission Date: 20080115
  Serious: Yes (Hospitalization)
  Sender: FDA-Public Use
  Company Number: VNL-00594-2007

PATIENT
  Sex: Male
  Weight: 56.6996 kg

DRUGS (4)
  1. APOKYN [Suspect]
     Indication: PARKINSON'S DISEASE
     Dosage: (0.2 ML PRN UP TO THREE TIMES DAILY SUBCUTANEOUS)
     Route: 058
     Dates: start: 20070418
  2. SINEMET [Concomitant]
  3. SYMMETREL [Concomitant]
  4. MIRAPEX [Concomitant]

REACTIONS (8)
  - BRAIN CONTUSION [None]
  - FALL [None]
  - HALLUCINATION [None]
  - HEAD INJURY [None]
  - INTRAVENTRICULAR HAEMORRHAGE [None]
  - SUBARACHNOID HAEMORRHAGE [None]
  - SUBDURAL HYGROMA [None]
  - TRANSIENT ISCHAEMIC ATTACK [None]
